FAERS Safety Report 7791964-7 (Version None)
Quarter: 2011Q4

REPORT INFORMATION
  Report Type: 
  Country: None (occurrence: None)
  Receive Date: 20111003
  Receipt Date: 20110930
  Transmission Date: 20120403
  Serious: Yes (Death)
  Sender: FDA-Public Use
  Company Number: PHFR2011IE04206

PATIENT
  Sex: Male

DRUGS (7)
  1. CLOZAPINE [Suspect]
     Indication: SCHIZOPHRENIA
     Dates: start: 20100119
  2. CLOZAPINE [Suspect]
     Dosage: 175 MG MANE + 300 MG NOCTE
     Dates: start: 20110628
  3. DALMANE [Concomitant]
     Dosage: 30 MG NOCTE
  4. INDERAL [Concomitant]
     Dosage: 5 MG, BID
  5. LEXAPRO [Concomitant]
     Dosage: 20 MG, QD
  6. CLOZAPINE [Suspect]
     Dates: start: 20110121
  7. MIRTAZAPINE [Concomitant]
     Dosage: 45 MG

REACTIONS (2)
  - MYOCARDIAL INFARCTION [None]
  - DEATH [None]
